FAERS Safety Report 9531199 (Version 2)
Quarter: 2013Q3

REPORT INFORMATION
  Report Type: Spontaneous
  Country: FR (occurrence: FR)
  Receive Date: 20130918
  Receipt Date: 20130926
  Transmission Date: 20140515
  Serious: Yes (Hospitalization, Other)
  Sender: FDA-Public Use
  Company Number: FR-RANBAXY-2013RR-73198

PATIENT
  Age: 64 Year
  Sex: Female

DRUGS (4)
  1. ROPINIROLE [Suspect]
     Indication: RESTLESS LEGS SYNDROME
     Dosage: 3 MG/DAY
     Route: 065
  2. ROPINIROLE [Suspect]
     Indication: RESTLESS LEGS SYNDROME
     Dosage: UNK
     Route: 065
  3. FLUOXETINE [Suspect]
     Indication: MAJOR DEPRESSION
     Dosage: UNK
     Route: 065
  4. BUPROPION [Suspect]
     Indication: MAJOR DEPRESSION
     Dosage: UNK
     Route: 065

REACTIONS (7)
  - Condition aggravated [Recovered/Resolved]
  - Compulsive shopping [Unknown]
  - Eating disorder [Unknown]
  - Weight increased [Recovered/Resolved]
  - Withdrawal syndrome [Recovered/Resolved]
  - Major depression [Recovered/Resolved]
  - Condition aggravated [Unknown]
